FAERS Safety Report 7881017-1 (Version None)
Quarter: 2011Q4

REPORT INFORMATION
  Report Type: 
  Country: None (occurrence: None)
  Receive Date: 20111101
  Receipt Date: 20110602
  Transmission Date: 20120403
  Serious: No
  Sender: FDA-Public Use
  Company Number: US-AMGEN-USASP2011028647

PATIENT
  Age: 61 Year
  Weight: 61.224 kg

DRUGS (15)
  1. PLAQUENIL [Concomitant]
     Dosage: 200 MG, UNK
  2. NEXIUM [Concomitant]
     Dosage: 20 MG, UNK
  3. ARTHROTEC [Concomitant]
     Dosage: 50 MG, UNK
  4. VITAMIN D [Concomitant]
     Dosage: 1000 IU, UNK
  5. ACETAMINOPHEN [Concomitant]
     Dosage: 325 MG, UNK
  6. CALCIUM MAGNESIUM [Concomitant]
  7. NITRO-BID [Concomitant]
     Dosage: 2 %, UNK
     Route: 061
  8. NIFEDIPINE [Concomitant]
     Dosage: 10 MG, UNK
  9. HYDROCHLOROTHIAZID [Concomitant]
     Dosage: 12.5 MG, UNK
  10. VITAMIN C                          /00008001/ [Concomitant]
     Dosage: 500 MG, UNK
  11. ARAVA [Concomitant]
     Dosage: 10 MG, UNK
  12. FEXOFENADINE [Concomitant]
     Dosage: 30 MG, UNK
  13. ENBREL [Suspect]
     Indication: PRODUCT USED FOR UNKNOWN INDICATION
     Dosage: 50 MG, QWK
     Route: 058
  14. PENTOXIFYLLINE [Concomitant]
     Dosage: 400 MG, UNK
  15. PSYLLIUM                           /01328801/ [Concomitant]
     Dosage: 500 MG, UNK

REACTIONS (3)
  - RASH MACULAR [None]
  - RASH PRURITIC [None]
  - RASH ERYTHEMATOUS [None]
